FAERS Safety Report 8906288 (Version 1)
Quarter: 2012Q4

REPORT INFORMATION
  Report Type: Spontaneous
  Country: US (occurrence: None)
  Receive Date: 20121112
  Receipt Date: 20121112
  Transmission Date: 20130627
  Serious: Yes (Other)
  Sender: FDA-Public Use
  Company Number: None

PATIENT
  Age: 54 Year
  Sex: Male
  Weight: 70.76 kg

DRUGS (2)
  1. CITALOPRAM HYDROBROMIDE [Suspect]
     Indication: DEPRESSION
     Dosage: 20mg 1 tablet each day po
     Route: 048
     Dates: start: 20121026, end: 20121109
  2. CITALOPRAM HYDROBROMIDE [Suspect]
     Indication: ANXIETY
     Dosage: 20mg 1 tablet each day po
     Route: 048
     Dates: start: 20121026, end: 20121109

REACTIONS (6)
  - Disturbance in attention [None]
  - Cognitive disorder [None]
  - Memory impairment [None]
  - Memory impairment [None]
  - Feeling abnormal [None]
  - Paranoia [None]
